FAERS Safety Report 10576919 (Version 1)
Quarter: 2014Q4

REPORT INFORMATION
  Report Type: Spontaneous
  Country: US (occurrence: US)
  Receive Date: 20141111
  Receipt Date: 20141111
  Transmission Date: 20150529
  Serious: No
  Sender: FDA-Public Use
  Company Number: US-009507513-1410USA016613

PATIENT
  Age: 47 Year
  Sex: Female

DRUGS (2)
  1. COUGH, COLD, AND FLU THERAPIES (UNSPECIFIED) [Concomitant]
     Active Substance: UNSPECIFIED INGREDIENT
  2. NASONEX [Suspect]
     Active Substance: MOMETASONE FUROATE
     Indication: RHINITIS ALLERGIC
     Dosage: STRENGTH DOSE 50 UNIT NOT REPORTED.ONE SPRAY IN EACH NOSTRIL BID
     Route: 045
     Dates: start: 2004

REACTIONS (3)
  - Headache [Not Recovered/Not Resolved]
  - Product odour abnormal [Unknown]
  - Inappropriate schedule of drug administration [Unknown]

NARRATIVE: CASE EVENT DATE: 2004
